FAERS Safety Report 7623440-6 (Version None)
Quarter: 2011Q3

REPORT INFORMATION
  Report Type: 
  Country: None (occurrence: None)
  Receive Date: 20110720
  Receipt Date: 20110715
  Transmission Date: 20111222
  Serious: Yes (Life-Threatening, Hospitalization)
  Sender: FDA-Public Use
  Company Number: ES-CELGENEUS-144-50794-11010871

PATIENT
  Sex: Male
  Weight: 62 kg

DRUGS (3)
  1. DEFERASIROX [Concomitant]
     Indication: CHELATION THERAPY
     Dosage: 1500 MILLIGRAM
     Route: 048
     Dates: start: 20101015
  2. VIDAZA [Suspect]
     Dosage: 75 MILLIGRAM/SQ. METER
     Route: 058
  3. GLIPIZIDE [Concomitant]
     Dosage: 15 MILLIGRAM
     Route: 048

REACTIONS (3)
  - CHOLECYSTITIS ACUTE [None]
  - CHOLELITHIASIS [None]
  - PYREXIA [None]
